FAERS Safety Report 4438643-1 (Version None)
Quarter: 2004Q3

REPORT INFORMATION
  Report Type: 
  Country: None (occurrence: None)
  Receive Date: 20040728
  Receipt Date: 20040301
  Transmission Date: 20050211
  Serious: No
  Sender: FDA-Public Use
  Company Number: USA040360530

PATIENT
  Sex: Female

DRUGS (3)
  1. STRATTERA [Suspect]
     Indication: DISTURBANCE IN ATTENTION
     Dosage: 25 MG/1 DAY
  2. OGEN [Concomitant]
  3. FOSAMAX [Concomitant]

REACTIONS (3)
  - HEADACHE [None]
  - POLLAKIURIA [None]
  - SOMNOLENCE [None]
